FAERS Safety Report 5730430-7 (Version None)
Quarter: 2008Q2

REPORT INFORMATION
  Report Type: 
  Country: None (occurrence: None)
  Receive Date: 20080507
  Receipt Date: 20080428
  Transmission Date: 20081010
  Serious: Yes (Other)
  Sender: FDA-Public Use
  Company Number: US-AMGEN-US276762

PATIENT
  Sex: Female

DRUGS (2)
  1. ARANESP [Suspect]
     Indication: BONE MARROW TRANSPLANT
  2. BACTRIM [Suspect]

REACTIONS (1)
  - BONE MARROW FAILURE [None]
